FAERS Safety Report 17926231 (Version 2)
Quarter: 2020Q2

REPORT INFORMATION
  Report Type: Report from Study
  Country: DE (occurrence: DE)
  Receive Date: 20200623
  Receipt Date: 20200629
  Transmission Date: 20200714
  Serious: Yes (Death, Hospitalization, Other)
  Sender: FDA-Public Use
  Company Number: DE-BRISTOL-MYERS SQUIBB COMPANY-BMS-2020-048746

PATIENT
  Age: 44 Year
  Sex: Male
  Weight: 95 kg

DRUGS (7)
  1. IPILIMUMAB [Suspect]
     Active Substance: IPILIMUMAB
     Dosage: 285, Q2WK
     Route: 065
     Dates: start: 20200421, end: 20200512
  2. IPILIMUMAB [Suspect]
     Active Substance: IPILIMUMAB
     Indication: LUNG NEOPLASM MALIGNANT
     Dosage: 285, Q2WK
     Route: 065
     Dates: start: 20200320
  3. NIVOLUMAB [Suspect]
     Active Substance: NIVOLUMAB
     Indication: MALIGNANT MELANOMA
     Dosage: 285, Q2WK
     Route: 065
     Dates: start: 20180723, end: 20181217
  4. NIVOLUMAB [Suspect]
     Active Substance: NIVOLUMAB
     Dosage: 285, Q2WK
     Route: 065
     Dates: start: 20200421, end: 20200512
  5. IPILIMUMAB [Suspect]
     Active Substance: IPILIMUMAB
     Indication: MALIGNANT MELANOMA
     Dosage: 285, Q2WK
     Route: 065
     Dates: start: 20200213
  6. NIVOLUMAB [Suspect]
     Active Substance: NIVOLUMAB
     Indication: LUNG NEOPLASM MALIGNANT
     Dosage: 285, Q2WK
     Route: 065
     Dates: start: 20200213
  7. NIVOLUMAB [Suspect]
     Active Substance: NIVOLUMAB
     Dosage: 285, Q2WK
     Route: 065
     Dates: start: 20200320

REACTIONS (3)
  - Prescribed overdose [Unknown]
  - Malignant neoplasm progression [Unknown]
  - Hepatic failure [Fatal]

NARRATIVE: CASE EVENT DATE: 20200305
